FAERS Safety Report 11701874 (Version 2)
Quarter: 2015Q4

REPORT INFORMATION
  Report Type: Spontaneous
  Country: US (occurrence: US)
  Receive Date: 20151105
  Receipt Date: 20151222
  Transmission Date: 20160304
  Serious: Yes (Other)
  Sender: FDA-Public Use
  Company Number: US-ENDO PHARMACEUTICALS INC.-2015-003683

PATIENT
  Age: 22 Year
  Sex: Male
  Weight: 61.29 kg

DRUGS (3)
  1. VALPROIC ACID. [Suspect]
     Active Substance: VALPROIC ACID
     Indication: SEIZURE
     Route: 065
     Dates: start: 201510
  2. VALPROIC ACID. [Suspect]
     Active Substance: VALPROIC ACID
     Indication: SEIZURE
     Route: 065
     Dates: start: 1993, end: 201510
  3. PHENOBARBITAL ELIXIR 20MG/5ML [Suspect]
     Active Substance: PHENOBARBITAL
     Indication: SEIZURE
     Route: 065
     Dates: start: 1993

REACTIONS (2)
  - Condition aggravated [Not Recovered/Not Resolved]
  - Seizure [Not Recovered/Not Resolved]

NARRATIVE: CASE EVENT DATE: 201510
